FAERS Safety Report 11619541 (Version 1)
Quarter: 2015Q4

REPORT INFORMATION
  Report Type: Spontaneous
  Country: US (occurrence: US)
  Receive Date: 20151012
  Receipt Date: 20151012
  Transmission Date: 20160304
  Serious: Yes (Hospitalization, Other)
  Sender: FDA-Public Use
  Company Number: US-GLAXOSMITHKLINE-US2015GSK140659

PATIENT
  Age: 53 Year
  Sex: Female

DRUGS (1)
  1. TANZEUM [Suspect]
     Active Substance: ALBIGLUTIDE
     Indication: PRODUCT USED FOR UNKNOWN INDICATION
     Dosage: 30 MG, WE
     Route: 065
     Dates: start: 2015, end: 20150911

REACTIONS (9)
  - Hypotension [Unknown]
  - Nausea [Unknown]
  - Blood glucose abnormal [Unknown]
  - Asthenia [Unknown]
  - Pyrexia [Unknown]
  - Acute kidney injury [Unknown]
  - Lupus-like syndrome [Unknown]
  - Urticaria [Unknown]
  - Platelet count decreased [Unknown]

NARRATIVE: CASE EVENT DATE: 20150911
